FAERS Safety Report 18893091 (Version 14)
Quarter: 2022Q2

REPORT INFORMATION
  Report Type: Report from Study
  Country: MY (occurrence: MY)
  Receive Date: 20210215
  Receipt Date: 20220512
  Transmission Date: 20220721
  Serious: Yes (Hospitalization)
  Sender: FDA-Public Use
  Company Number: NVSC2021MY027916

PATIENT
  Age: 58 Year
  Sex: Female
  Weight: 54 kg

DRUGS (17)
  1. ALPELISIB [Suspect]
     Active Substance: ALPELISIB
     Indication: Triple negative breast cancer
     Dosage: UNK
     Route: 048
     Dates: start: 20210115, end: 20210121
  2. ALPELISIB [Suspect]
     Active Substance: ALPELISIB
     Dosage: UNK
     Route: 048
     Dates: start: 20210122
  3. PACLITAXEL [Suspect]
     Active Substance: PACLITAXEL
     Indication: Triple negative breast cancer
     Dosage: 150 MG, ONCE
     Route: 042
     Dates: start: 20210115
  4. MORPHINE [Concomitant]
     Active Substance: MORPHINE
     Indication: Pain
     Dosage: UNK
     Route: 065
     Dates: start: 20210122, end: 20210129
  5. MORPHINE [Concomitant]
     Active Substance: MORPHINE
     Indication: Rash
     Dosage: UNK
     Route: 065
     Dates: start: 20210326, end: 20210329
  6. MAXOLON [Concomitant]
     Active Substance: METOCLOPRAMIDE HYDROCHLORIDE
     Indication: Pain
     Dosage: 10 MG
     Route: 065
     Dates: start: 20210115, end: 20210124
  7. MAXOLON [Concomitant]
     Active Substance: METOCLOPRAMIDE HYDROCHLORIDE
     Dosage: UNK
     Route: 065
     Dates: start: 20210122, end: 20210129
  8. METFORMIN [Concomitant]
     Active Substance: METFORMIN HYDROCHLORIDE
     Indication: Hyperglycaemia
     Dosage: UNK
     Route: 065
     Dates: start: 20210318
  9. ACETAMINOPHEN [Concomitant]
     Active Substance: ACETAMINOPHEN
     Indication: Pain
     Dosage: UNK
     Route: 065
     Dates: start: 20210122, end: 20210129
  10. ACETAMINOPHEN [Concomitant]
     Active Substance: ACETAMINOPHEN
     Indication: Rash
     Dosage: UNK
     Route: 065
     Dates: start: 20210328, end: 20210329
  11. FLAGYL [Concomitant]
     Active Substance: METRONIDAZOLE\METRONIDAZOLE HYDROCHLORIDE
     Indication: Rash
     Dosage: UNK
     Route: 065
     Dates: start: 20210326, end: 20210328
  12. PARAFFIN [Concomitant]
     Active Substance: PARAFFIN
     Indication: Rash
     Dosage: UNK
     Route: 065
     Dates: start: 20210326, end: 20210329
  13. NEXIUM [Concomitant]
     Active Substance: ESOMEPRAZOLE MAGNESIUM
     Indication: Pain
     Dosage: UNK
     Route: 065
     Dates: start: 20210122, end: 20210129
  14. AUGMENTIN [Concomitant]
     Active Substance: AMOXICILLIN\CLAVULANATE POTASSIUM
     Indication: Rash
     Dosage: 625 MG
     Route: 065
     Dates: start: 20210327, end: 20210329
  15. SODIUM LACTATE [Concomitant]
     Active Substance: SODIUM LACTATE
     Indication: General physical condition
     Dosage: UNK
     Route: 065
     Dates: start: 20210122, end: 20210122
  16. CHLORPHENIRAMINE MALEATE [Concomitant]
     Active Substance: CHLORPHENIRAMINE MALEATE
     Indication: Pain
     Dosage: UNK
     Route: 065
     Dates: start: 20210122, end: 20210129
  17. HYDROCORTISONE [Concomitant]
     Active Substance: HYDROCORTISONE
     Indication: Rash
     Dosage: UNK
     Route: 065
     Dates: start: 20210129, end: 20210205

REACTIONS (2)
  - Febrile neutropenia [Recovered/Resolved]
  - Stomatitis [Recovering/Resolving]

NARRATIVE: CASE EVENT DATE: 20210205
